FAERS Safety Report 26215783 (Version 1)
Quarter: 2025Q4

REPORT INFORMATION
  Report Type: Spontaneous
  Country: ET (occurrence: ET)
  Receive Date: 20251231
  Receipt Date: 20251231
  Transmission Date: 20260118
  Serious: Yes (Hospitalization, Other)
  Sender: PHARMOBEDIENT CONSULTING, LLC
  Company Number: ET-Pharmobedient-000755

PATIENT
  Age: 23 Year
  Sex: Male

DRUGS (2)
  1. AMLODIPINE BESYLATE [Suspect]
     Active Substance: AMLODIPINE BESYLATE
     Indication: Product used for unknown indication
     Dosage: 30 TABLETS (GREATER OR EQUALS TO 300 MG)
  2. DICLOFENAC [Suspect]
     Active Substance: DICLOFENAC
     Indication: Product used for unknown indication

REACTIONS (17)
  - Suicide attempt [Unknown]
  - Acute kidney injury [Recovering/Resolving]
  - Intentional overdose [Unknown]
  - Cardiac arrest [Recovering/Resolving]
  - Multiple organ dysfunction syndrome [Recovering/Resolving]
  - Hypotension [Recovering/Resolving]
  - Bradyarrhythmia [Recovering/Resolving]
  - Non-cardiogenic pulmonary oedema [Recovering/Resolving]
  - Pleural effusion [Recovering/Resolving]
  - Respiratory distress [Recovering/Resolving]
  - Condition aggravated [Unknown]
  - Distributive shock [Recovering/Resolving]
  - Cellulitis [Recovering/Resolving]
  - Hypoxia [Recovering/Resolving]
  - Sepsis [Recovering/Resolving]
  - Toxicity to various agents [Unknown]
  - Rhythm idioventricular [Recovering/Resolving]
